FAERS Safety Report 5987154-0 (Version None)
Quarter: 2008Q4

REPORT INFORMATION
  Report Type: 
  Country: None (occurrence: None)
  Receive Date: 20081209
  Receipt Date: 20081124
  Transmission Date: 20090506
  Serious: Yes (Hospitalization, Other)
  Sender: FDA-Public Use
  Company Number: US-PFIZER INC-2008150214

PATIENT
  Age: 85 Year
  Sex: Male

DRUGS (1)
  1. DOFETILIDE [Suspect]
     Indication: ATRIAL FLUTTER

REACTIONS (2)
  - CARDIAC ARREST [None]
  - VENTRICULAR FIBRILLATION [None]
